FAERS Safety Report 16741628 (Version 2)
Quarter: 2019Q3

REPORT INFORMATION
  Report Type: Spontaneous
  Country: CO (occurrence: CO)
  Receive Date: 20190826
  Receipt Date: 20190828
  Transmission Date: 20191005
  Serious: Yes (Death)
  Sender: FDA-Public Use
  Company Number: CO-ALLERGAN-1934779US

PATIENT
  Sex: Male

DRUGS (3)
  1. FOSFOMYCIN TROMETHAMINE - BP [Suspect]
     Active Substance: FOSFOMYCIN TROMETHAMINE
     Indication: URINARY TRACT INFECTION
     Dosage: UNK
     Route: 065
  2. DORIPENEM. [Suspect]
     Active Substance: DORIPENEM
     Indication: URINARY TRACT INFECTION
     Dosage: 1 G, TID
     Route: 065
  3. COLISTIMETHATE SODIUM. [Suspect]
     Active Substance: COLISTIMETHATE SODIUM
     Indication: URINARY TRACT INFECTION
     Dosage: 1500000 UNITS, TID
     Route: 042

REACTIONS (2)
  - Drug ineffective [Fatal]
  - Death [Fatal]
